FAERS Safety Report 8047209-6 (Version None)
Quarter: 2012Q1

REPORT INFORMATION
  Report Type: 
  Country: None (occurrence: None)
  Receive Date: 20120116
  Receipt Date: 20120106
  Transmission Date: 20120608
  Serious: Yes (Other)
  Sender: FDA-Public Use
  Company Number: US-ASTELLAS-2011US006106

PATIENT
  Sex: Female
  Weight: 63 kg

DRUGS (1)
  1. TARCEVA [Suspect]
     Indication: LUNG NEOPLASM MALIGNANT
     Dosage: UNK
     Route: 048
     Dates: end: 20110101

REACTIONS (6)
  - RASH GENERALISED [None]
  - SURGERY [None]
  - UNEVALUABLE EVENT [None]
  - MYOPATHY [None]
  - DRUG INEFFECTIVE [None]
  - NEUROPATHY PERIPHERAL [None]
